FAERS Safety Report 10566384 (Version 2)
Quarter: 2014Q4

REPORT INFORMATION
  Report Type: Spontaneous
  Country: FR (occurrence: FR)
  Receive Date: 20141105
  Receipt Date: 20141111
  Transmission Date: 20150529
  Serious: Yes (Other)
  Sender: FDA-Public Use
  Company Number: FR-ASTRAZENECA-2014SE82937

PATIENT
  Age: 22858 Day
  Sex: Male

DRUGS (10)
  1. PERINDOPRIL [Concomitant]
     Active Substance: PERINDOPRIL
     Dates: end: 20141005
  2. OTHER ANESTHESIC TREATMENT [Concomitant]
     Indication: ANAESTHESIA
     Dates: start: 20141006
  3. SUFENTANIL [Concomitant]
     Active Substance: SUFENTANIL
     Indication: ANAESTHESIA
     Dates: start: 20141006
  4. FINASTERIDE. [Concomitant]
     Active Substance: FINASTERIDE
  5. DIPRIVAN [Concomitant]
     Active Substance: PROPOFOL
     Indication: ANAESTHESIA
     Dates: start: 20141006
  6. BISOPROLOL [Concomitant]
     Active Substance: BISOPROLOL
  7. PANTOPRAZOLE [Concomitant]
     Active Substance: PANTOPRAZOLE SODIUM
  8. PROCORALAN [Concomitant]
     Active Substance: IVABRADINE
  9. NAROPEINE [Suspect]
     Active Substance: ROPIVACAINE HYDROCHLORIDE
     Route: 058
     Dates: start: 20141006, end: 20141007
  10. TAHOR [Concomitant]
     Active Substance: ATORVASTATIN CALCIUM

REACTIONS (4)
  - Circulatory collapse [Recovered/Resolved]
  - Metabolic acidosis [Recovered/Resolved]
  - Medication error [Recovered/Resolved]
  - Shock [Recovered/Resolved]

NARRATIVE: CASE EVENT DATE: 20141006
